FAERS Safety Report 6474487-7 (Version None)
Quarter: 2009Q4

REPORT INFORMATION
  Report Type: 
  Country: None (occurrence: None)
  Receive Date: 20091204
  Receipt Date: 20091125
  Transmission Date: 20100525
  Serious: Yes (Other)
  Sender: FDA-Public Use
  Company Number: JP-SANOFI-AVENTIS-2009SA004886

PATIENT
  Age: 3 Year
  Sex: Male

DRUGS (4)
  1. CEFOTAXIME SODIUM [Suspect]
  2. DEXAMETHASONE TAB [Concomitant]
  3. PANIPENEM [Concomitant]
  4. GLYCEOL [Concomitant]
     Dosage: DOSE:5 MILLILITRE(S)/KILOGRAM

REACTIONS (2)
  - PANCYTOPENIA [None]
  - PYREXIA [None]
